FAERS Safety Report 10659101 (Version 2)
Quarter: 2014Q4

REPORT INFORMATION
  Report Type: Spontaneous
  Country: US (occurrence: US)
  Receive Date: 20141217
  Receipt Date: 20141217
  Transmission Date: 20150529
  Serious: No
  Sender: FDA-Public Use
  Company Number: US-GLAXOSMITHKLINE-A1074541A

PATIENT

DRUGS (1)
  1. VOTRIENT [Suspect]
     Active Substance: PAZOPANIB HYDROCHLORIDE
     Indication: RENAL CANCER
     Dosage: 200MG TAB AT 2 TABLETS (400MG) DAILY
     Route: 065
     Dates: start: 20131108, end: 20140428

REACTIONS (5)
  - Anaemia [Unknown]
  - Weight decreased [Unknown]
  - Drug ineffective [Unknown]
  - Asthenia [Unknown]
  - Neoplasm [Unknown]
